FAERS Safety Report 7432618-6 (Version None)
Quarter: 2011Q2

REPORT INFORMATION
  Report Type: 
  Country: None (occurrence: None)
  Receive Date: 20110422
  Receipt Date: 20110418
  Transmission Date: 20111010
  Serious: Yes (Other)
  Sender: FDA-Public Use
  Company Number: CO-PFIZER INC-2010155294

PATIENT
  Age: 53 Year
  Sex: Male

DRUGS (3)
  1. RAPAMUNE [Suspect]
     Indication: RENAL TRANSPLANT
     Dosage: 2 MG, 2X/DAY
     Route: 048
     Dates: start: 20090701, end: 20091101
  2. RAPAMUNE [Suspect]
     Dosage: 1 MG, 1X/DAY
     Route: 048
     Dates: start: 20091101
  3. CELLCEPT [Concomitant]
     Dosage: UNK
     Dates: end: 20101103

REACTIONS (6)
  - MALIGNANT TUMOUR EXCISION [None]
  - HAND FRACTURE [None]
  - GOITRE [None]
  - BALANCE DISORDER [None]
  - BASAL CELL CARCINOMA [None]
  - SEBACEOUS CARCINOMA [None]
